FAERS Safety Report 8701722 (Version 10)
Quarter: 2013Q2

REPORT INFORMATION
  Report Type: Spontaneous
  Country: US (occurrence: US)
  Receive Date: 20120803
  Receipt Date: 20130422
  Transmission Date: 20140414
  Serious: Yes (Hospitalization, Disabling, Other)
  Sender: FDA-Public Use
  Company Number: US-009507513-1207USA009297

PATIENT
  Sex: Female
  Weight: 62.59 kg

DRUGS (4)
  1. FOSAMAX [Suspect]
     Indication: OSTEOPOROSIS
     Dosage: 70 MG QW
     Route: 048
     Dates: start: 20041115, end: 20080304
  2. ACTONEL [Suspect]
     Indication: OSTEOPOROSIS
     Dosage: UNK
     Dates: start: 20001208, end: 20041021
  3. ALENDRONATE SODIUM [Suspect]
     Indication: OSTEOPOROSIS
     Dosage: 70 MG, UNK
     Dates: start: 20080506, end: 20100308
  4. ESTROGENS (UNSPECIFIED) [Concomitant]
     Indication: PRODUCT USED FOR UNKNOWN INDICATION
     Dosage: UNK
     Dates: start: 1993

REACTIONS (45)
  - Osteonecrosis [Unknown]
  - Foot operation [Unknown]
  - Knee operation [Unknown]
  - Anxiety [Not Recovered/Not Resolved]
  - Depression [Not Recovered/Not Resolved]
  - Bone graft [Recovering/Resolving]
  - Osteonecrosis [Unknown]
  - Back disorder [Unknown]
  - Hypertension [Unknown]
  - Osteonecrosis of jaw [Unknown]
  - Dental implantation [Recovering/Resolving]
  - Abscess [Unknown]
  - Oral infection [Unknown]
  - Dental caries [Unknown]
  - Impaired healing [Unknown]
  - Oral disorder [Unknown]
  - Bone atrophy [Unknown]
  - Mitral valve prolapse [Unknown]
  - Sinus disorder [Unknown]
  - Gingival pain [Unknown]
  - Fracture [Unknown]
  - Dermatitis contact [Unknown]
  - Arthroscopy [Unknown]
  - Ankle fracture [Unknown]
  - Bone contusion [Unknown]
  - Ligament rupture [Unknown]
  - Avulsion fracture [Unknown]
  - Nasal septum deviation [Unknown]
  - Osteochondrosis [Unknown]
  - Ankle impingement [Unknown]
  - Osteoarthritis [Unknown]
  - Visual impairment [Unknown]
  - Surgery [Unknown]
  - Physical abuse [Unknown]
  - Exostosis [Unknown]
  - Bone infarction [Unknown]
  - Meniscus injury [Unknown]
  - Bone marrow oedema [Unknown]
  - Joint effusion [Unknown]
  - Synovial cyst [Unknown]
  - Gastric ulcer [Unknown]
  - Arthralgia [Unknown]
  - Joint swelling [Unknown]
  - Pruritus [Unknown]
  - Hypersensitivity [Unknown]
